FAERS Safety Report 21904324 (Version 1)
Quarter: 2023Q1

REPORT INFORMATION
  Report Type: Spontaneous
  Country: US (occurrence: None)
  Receive Date: 20230124
  Receipt Date: 20230124
  Transmission Date: 20230417
  Serious: Yes (Hospitalization)
  Sender: FDA-Public Use
  Company Number: None

PATIENT
  Age: 87 Year
  Sex: Male
  Weight: 110.22 kg

DRUGS (6)
  1. ABIRATERONE [Suspect]
     Active Substance: ABIRATERONE
     Indication: Prostate cancer
     Dosage: 1000MG ONCE DAILY ORAL?
     Route: 048
     Dates: start: 20221004
  2. ABIRATERONE [Concomitant]
     Active Substance: ABIRATERONE
  3. CALCIUM [Concomitant]
     Active Substance: CALCIUM
  4. LOSARTAN [Concomitant]
     Active Substance: LOSARTAN
  5. METOPROLOL [Concomitant]
     Active Substance: METOPROLOL
  6. PREDNISONE [Concomitant]
     Active Substance: PREDNISONE

REACTIONS (2)
  - Dehydration [None]
  - Diarrhoea [None]

NARRATIVE: CASE EVENT DATE: 20230123
